FAERS Safety Report 7815109-X (Version None)
Quarter: 2011Q4

REPORT INFORMATION
  Report Type: 
  Country: None (occurrence: None)
  Receive Date: 20111014
  Receipt Date: 20111011
  Transmission Date: 20120403
  Serious: Yes (Death, Hospitalization, Other)
  Sender: FDA-Public Use
  Company Number: IR-ROXANE LABORATORIES, INC.-2011-RO-01448RO

PATIENT
  Age: 33 Year
  Sex: Female

DRUGS (15)
  1. PREDNISOLONE [Suspect]
     Indication: RENAL TRANSPLANT
     Dosage: 5 MG
  2. VORICONAZOLE [Suspect]
  3. ISONIAZID [Suspect]
     Indication: ASPERGILLOSIS
  4. CEFTRIAXONE [Suspect]
  5. PYRAZINAMIDE [Suspect]
     Indication: ASPERGILLOSIS
  6. MYCOPHENOLATE MOFETIL [Suspect]
     Indication: RENAL TRANSPLANT
     Dosage: 2000 MG
     Route: 048
  7. ETHAMBUTOL HYDROCHLORIDE [Suspect]
     Indication: ASPERGILLOSIS
  8. CYCLOSPORINE [Suspect]
     Indication: RENAL TRANSPLANT
     Dosage: 175 MG
  9. RIFAMPIN [Suspect]
     Indication: DRUG THERAPY
  10. ETHAMBUTOL HYDROCHLORIDE [Suspect]
     Indication: DRUG THERAPY
  11. PYRAZINAMIDE [Suspect]
     Indication: DRUG THERAPY
  12. ISONIAZID [Suspect]
     Indication: DRUG THERAPY
  13. VANCOMYCIN HCL [Suspect]
  14. RIFAMPIN [Suspect]
     Indication: ASPERGILLOSIS
  15. AMPHOTERICIN B [Suspect]

REACTIONS (6)
  - TUBERCULOSIS [None]
  - SPLENOMEGALY [None]
  - GENERAL PHYSICAL HEALTH DETERIORATION [None]
  - LYMPHADENOPATHY [None]
  - ASPERGILLOSIS [None]
  - ENCEPHALITIS [None]
